FAERS Safety Report 19893966 (Version 3)
Quarter: 2021Q4

REPORT INFORMATION
  Report Type: Report from Study
  Country: AU (occurrence: NZ)
  Receive Date: 20210928
  Receipt Date: 20211228
  Transmission Date: 20220303
  Serious: Yes (Hospitalization)
  Sender: FDA-Public Use
  Company Number: AU-BIOGEN-2021BI01050859

PATIENT
  Age: 0 Day
  Sex: Female

DRUGS (2)
  1. TYSABRI [Suspect]
     Active Substance: NATALIZUMAB
     Indication: Maternal exposure timing unspecified
     Route: 064
     Dates: start: 201809, end: 20201102
  2. TYSABRI [Suspect]
     Active Substance: NATALIZUMAB
     Route: 064

REACTIONS (4)
  - Neonatal dyspnoea [Unknown]
  - Hyperinsulinaemia [Recovered/Resolved]
  - Birth trauma [Recovered/Resolved]
  - Foetal exposure during pregnancy [Unknown]

NARRATIVE: CASE EVENT DATE: 20210828
